FAERS Safety Report 15008003 (Version 1)
Quarter: 2018Q2

REPORT INFORMATION
  Report Type: Spontaneous
  Country: US (occurrence: US)
  Receive Date: 20180613
  Receipt Date: 20180613
  Transmission Date: 20180711
  Serious: No
  Sender: FDA-Public Use
  Company Number: US-PERRIGO-18US000277

PATIENT
  Age: 80 Year
  Sex: Female
  Weight: 53.52 kg

DRUGS (6)
  1. LANSOPRAZOLE. [Suspect]
     Active Substance: LANSOPRAZOLE
     Indication: ULCER
     Dosage: 15 MG, BID
     Route: 048
     Dates: start: 201709, end: 201801
  2. BUSPIRONE [Concomitant]
     Active Substance: BUSPIRONE HYDROCHLORIDE
     Indication: ANXIETY
     Dosage: UNK
     Route: 065
     Dates: start: 20171222
  3. VITAMINS NOS [Concomitant]
     Active Substance: VITAMINS
     Indication: SUPPLEMENTATION THERAPY
     Dosage: UNK
     Route: 048
     Dates: start: 2010
  4. VITAMIN K NOS [Concomitant]
     Active Substance: DIETARY SUPPLEMENT\ MENAQUINONE 6\PHYTONADIONE
     Indication: SUPPLEMENTATION THERAPY
     Dosage: UNK
     Route: 048
     Dates: start: 2010
  5. CALCIUM + VIT D [Concomitant]
     Active Substance: CALCIUM\VITAMIN D
     Indication: SUPPLEMENTATION THERAPY
     Dosage: UNK
     Route: 048
     Dates: start: 2010
  6. LORAZEPAM. [Concomitant]
     Active Substance: LORAZEPAM
     Indication: TREMOR
     Dosage: UNK, PRN
     Route: 065
     Dates: start: 2010

REACTIONS (2)
  - Incorrect drug administration duration [Recovered/Resolved]
  - Off label use [Recovered/Resolved]

NARRATIVE: CASE EVENT DATE: 201709
